FAERS Safety Report 20019626 (Version 3)
Quarter: 2022Q1

REPORT INFORMATION
  Report Type: Spontaneous
  Country: US (occurrence: US)
  Receive Date: 20211101
  Receipt Date: 20220208
  Transmission Date: 20220423
  Serious: No
  Sender: FDA-Public Use
  Company Number: US-SUNOVION-2021SUN004077

PATIENT
  Age: 90 Year
  Sex: Male

DRUGS (1)
  1. LONHALA MAGNAIR [Suspect]
     Active Substance: GLYCOPYRROLATE
     Dosage: 25 ?G
     Route: 055

REACTIONS (10)
  - Confusional state [Unknown]
  - Hypoacusis [Unknown]
  - Dyspnoea [Unknown]
  - Cough [Unknown]
  - Incorrect dose administered [Unknown]
  - Therapy interrupted [Unknown]
  - Product after taste [Unknown]
  - Device issue [Unknown]
  - Device power source issue [Unknown]
  - Device delivery system issue [Unknown]
